FAERS Safety Report 9283415 (Version 1)
Quarter: 2013Q2

REPORT INFORMATION
  Report Type: Spontaneous
  Country: US (occurrence: US)
  Receive Date: 20130510
  Receipt Date: 20130510
  Transmission Date: 20140414
  Serious: No
  Sender: FDA-Public Use
  Company Number: US-GLAXOSMITHKLINE-A1006804A

PATIENT
  Age: 61 Year
  Sex: Female

DRUGS (9)
  1. TYKERB [Suspect]
     Indication: BREAST CANCER FEMALE
     Dosage: 250MG SEE DOSAGE TEXT
     Route: 048
     Dates: start: 20121016, end: 20121219
  2. MULTIVITAMIN [Concomitant]
  3. MIRALAX [Concomitant]
  4. CALCIUM [Concomitant]
  5. MORPHINE [Concomitant]
  6. CELEBREX [Concomitant]
  7. CYMBALTA [Concomitant]
  8. NEXIUM [Concomitant]
  9. HERCEPTIN [Concomitant]

REACTIONS (1)
  - Drug ineffective [Unknown]
